FAERS Safety Report 4662351-5 (Version None)
Quarter: 2005Q2

REPORT INFORMATION
  Report Type: 
  Country: None (occurrence: None)
  Receive Date: 20050513
  Receipt Date: 20050513
  Transmission Date: 20051028
  Serious: No
  Sender: FDA-Public Use
  Company Number: None

PATIENT
  Sex: Male
  Weight: 77.1115 kg

DRUGS (1)
  1. FLOMAX [Suspect]
     Indication: BENIGN PROSTATIC HYPERPLASIA
     Dosage: 0.4MG   DAY    ORAL
     Route: 048
     Dates: start: 20020103, end: 20050512

REACTIONS (3)
  - IRIDOCELE [None]
  - MIOSIS [None]
  - PROCEDURAL COMPLICATION [None]
